FAERS Safety Report 24804524 (Version 1)
Quarter: 2025Q1

REPORT INFORMATION
  Report Type: Spontaneous
  Country: US (occurrence: None)
  Receive Date: 20250102
  Receipt Date: 20250102
  Transmission Date: 20250409
  Serious: Yes (unspecified)
  Sender: FDA-CTU
  Company Number: None

PATIENT
  Age: 54 Week
  Sex: Female
  Weight: 72 kg

DRUGS (3)
  1. TRINTELLIX [Suspect]
     Active Substance: VORTIOXETINE HYDROBROMIDE
     Indication: Tardive dyskinesia
     Dosage: 20 MG DAILY ORAL
     Route: 048
  2. TRINTELLIX [Suspect]
     Active Substance: VORTIOXETINE HYDROBROMIDE
     Indication: Akathisia
  3. SYNTHROID [Concomitant]
     Active Substance: LEVOTHYROXINE SODIUM
     Dates: start: 19800902, end: 20250102

REACTIONS (2)
  - Parkinsonism [None]
  - Akathisia [None]

NARRATIVE: CASE EVENT DATE: 20240502
